FAERS Safety Report 11054568 (Version 3)
Quarter: 2015Q4

REPORT INFORMATION
  Report Type: Spontaneous
  Country: AU (occurrence: AU)
  Receive Date: 20150422
  Receipt Date: 20151012
  Transmission Date: 20160304
  Serious: No
  Sender: FDA-Public Use
  Company Number: AU-ABBVIE-15K-008-1378958-00

PATIENT
  Sex: Female

DRUGS (2)
  1. HUMIRA [Suspect]
     Active Substance: ADALIMUMAB
     Indication: CROHN^S DISEASE
     Route: 058
  2. 6-MERCAPTOPURINE MONOHYDRATE [Concomitant]
     Active Substance: MERCAPTOPURINE
     Indication: PRODUCT USED FOR UNKNOWN INDICATION
     Dosage: FREQUENCY: DAILY

REACTIONS (1)
  - Diarrhoea [Not Recovered/Not Resolved]
